FAERS Safety Report 11452282 (Version 1)
Quarter: 2015Q3

REPORT INFORMATION
  Report Type: Spontaneous
  Country: US (occurrence: None)
  Receive Date: 20150902
  Receipt Date: 20150902
  Transmission Date: 20151125
  Serious: No
  Sender: FDA-Public Use
  Company Number: None

PATIENT
  Age: 59 Year
  Sex: Female

DRUGS (1)
  1. HARVONI [Suspect]
     Active Substance: LEDIPASVIR\SOFOSBUVIR
     Dosage: 1 TABLET  DAILY  PO
     Route: 048
     Dates: start: 20150527, end: 20150714

REACTIONS (1)
  - Vertigo [None]

NARRATIVE: CASE EVENT DATE: 20150528
